FAERS Safety Report 7571212-3 (Version None)
Quarter: 2011Q2

REPORT INFORMATION
  Report Type: 
  Country: None (occurrence: None)
  Receive Date: 20110624
  Receipt Date: 20110607
  Transmission Date: 20111010
  Serious: Yes (Other)
  Sender: FDA-Public Use
  Company Number: A0886512A

PATIENT
  Age: 55 Year
  Sex: Male
  Weight: 109.5 kg

DRUGS (5)
  1. AVANDIA [Suspect]
     Route: 048
     Dates: start: 19990101, end: 20050101
  2. ASPIRIN [Concomitant]
  3. SIMVASTATIN [Concomitant]
  4. CHANTIX [Concomitant]
  5. AVANDARYL [Suspect]
     Route: 048
     Dates: start: 20050101, end: 20101001

REACTIONS (3)
  - CEREBROVASCULAR ACCIDENT [None]
  - CARDIAC DISORDER [None]
  - CARDIOVASCULAR DISORDER [None]
